FAERS Safety Report 8374019-2 (Version None)
Quarter: 2012Q2

REPORT INFORMATION
  Report Type: 
  Country: None (occurrence: None)
  Receive Date: 20120517
  Receipt Date: 20120517
  Transmission Date: 20120825
  Serious: Yes (Other)
  Sender: FDA-Public Use
  Company Number: None

PATIENT
  Age: 37 Year
  Sex: Female
  Weight: 104.3273 kg

DRUGS (1)
  1. SAVELLA [Suspect]
     Indication: FIBROMYALGIA
     Dosage: 1 TABLET PER DAY PO
     Route: 048
     Dates: start: 20120407, end: 20120516

REACTIONS (6)
  - HEADACHE [None]
  - HOT FLUSH [None]
  - BLOOD PRESSURE INCREASED [None]
  - VISION BLURRED [None]
  - TENSION HEADACHE [None]
  - IRRITABILITY [None]
